FAERS Safety Report 8350321-5 (Version None)
Quarter: 2012Q2

REPORT INFORMATION
  Report Type: 
  Country: None (occurrence: None)
  Receive Date: 20120510
  Receipt Date: 20120426
  Transmission Date: 20120825
  Serious: Yes (Other)
  Sender: FDA-Public Use
  Company Number: AU-ROCHE-1066411

PATIENT
  Sex: Male
  Weight: 86 kg

DRUGS (2)
  1. ALISPORIVIR [Suspect]
     Indication: HEPATITIS C
     Route: 048
     Dates: start: 20110407, end: 20110705
  2. PEGASYS [Suspect]
     Indication: HEPATITIS C
     Route: 058
     Dates: start: 20110407, end: 20110630

REACTIONS (4)
  - HOMICIDAL IDEATION [None]
  - MAJOR DEPRESSION [None]
  - ALCOHOL POISONING [None]
  - SUICIDAL IDEATION [None]
